FAERS Safety Report 12074302 (Version 1)
Quarter: 2016Q1

REPORT INFORMATION
  Report Type: Spontaneous
  Country: IN (occurrence: IN)
  Receive Date: 20160212
  Receipt Date: 20160212
  Transmission Date: 20160526
  Serious: Yes (Hospitalization, Other)
  Sender: FDA-Public Use
  Company Number: IN-NORTHSTAR HEALTHCARE HOLDINGS-IN-2016NSR000518

PATIENT

DRUGS (3)
  1. ALCOHOL. [Suspect]
     Active Substance: ALCOHOL
     Indication: PRODUCT USED FOR UNKNOWN INDICATION
     Dosage: 240 G, SINGLE
  2. BACLOFEN. [Suspect]
     Active Substance: BACLOFEN
     Indication: ALCOHOLISM
     Dosage: 60 MG, QD
  3. BACLOFEN. [Suspect]
     Active Substance: BACLOFEN
     Dosage: 280 MG, SINGLE

REACTIONS (9)
  - Altered state of consciousness [Recovered/Resolved]
  - Off label use [Unknown]
  - Intentional overdose [Recovered/Resolved]
  - Respiratory distress [Recovered/Resolved]
  - Cyclothymic disorder [Unknown]
  - Hypotension [Recovered/Resolved]
  - Suicide attempt [Recovered/Resolved]
  - Hypotonia [Recovered/Resolved]
  - Alcoholism [Unknown]
